FAERS Safety Report 11154699 (Version 1)
Quarter: 2015Q2

REPORT INFORMATION
  Report Type: Spontaneous
  Country: US (occurrence: None)
  Receive Date: 20150529
  Receipt Date: 20150529
  Transmission Date: 20150821
  Serious: Yes (Hospitalization)
  Sender: FDA-Public Use
  Company Number: 1224850-2015-00024

PATIENT
  Age: 66 Year
  Sex: Female

DRUGS (2)
  1. PHOSLO [Suspect]
     Active Substance: CALCIUM ACETATE
     Route: 048
  2. DIANEAL LOW CALCIUM ULTRA BAG [Concomitant]

REACTIONS (2)
  - Blood phosphorus increased [None]
  - Diarrhoea [None]

NARRATIVE: CASE EVENT DATE: 20130910
